FAERS Safety Report 6535594-3 (Version None)
Quarter: 2010Q1

REPORT INFORMATION
  Report Type: 
  Country: None (occurrence: None)
  Receive Date: 20100113
  Receipt Date: 20100104
  Transmission Date: 20100710
  Serious: Yes (Other)
  Sender: FDA-Public Use
  Company Number: PHHY2010CA00534

PATIENT
  Sex: Female

DRUGS (1)
  1. SANDOSTATIN LAR [Suspect]
     Indication: SARCOMA UTERUS
     Dosage: 20 MG, QMO
     Route: 030
     Dates: start: 20090929

REACTIONS (1)
  - GENERAL PHYSICAL HEALTH DETERIORATION [None]
